FAERS Safety Report 4476743-0 (Version None)
Quarter: 2004Q4

REPORT INFORMATION
  Report Type: 
  Country: None (occurrence: None)
  Receive Date: 20041013
  Receipt Date: 20040923
  Transmission Date: 20050328
  Serious: Yes (Hospitalization)
  Sender: FDA-Public Use
  Company Number: USA040979143

PATIENT
  Age: 41 Year
  Sex: Female
  Weight: 50.8029 kg

DRUGS (5)
  1. CYMBALTA [Suspect]
     Indication: DEPRESSION
     Dosage: 30 MG DAY
     Dates: start: 20040901
  2. ZYPREXA [Suspect]
     Indication: BIPOLAR II DISORDER
     Dosage: 5 MG DAY
     Dates: end: 20040901
  3. NEURONTIN (GABAPENTIN PFIZER) [Concomitant]
  4. SERAX [Concomitant]
  5. ACETAMINOPHEN W/HYDROCODONE [Concomitant]

REACTIONS (3)
  - ALCOHOL USE [None]
  - PANCREATITIS ACUTE [None]
  - PSYCHOMOTOR HYPERACTIVITY [None]
